FAERS Safety Report 20931009 (Version 1)
Quarter: 2022Q2

REPORT INFORMATION
  Report Type: Spontaneous
  Country: GB (occurrence: GB)
  Receive Date: 20220608
  Receipt Date: 20220608
  Transmission Date: 20220720
  Serious: Yes (Hospitalization)
  Sender: FDA-Public Use
  Company Number: GB-MYLANLABS-2022M1042689

PATIENT
  Age: 27 Year
  Sex: Female

DRUGS (3)
  1. LANSOPRAZOLE [Suspect]
     Active Substance: LANSOPRAZOLE
     Indication: Prophylaxis
     Dosage: 30 MILLIGRAM
  2. DOMPERIDONE [Suspect]
     Active Substance: DOMPERIDONE
     Indication: Prophylaxis
     Dosage: 30 MILLIGRAM
  3. PHENYRAMIDOL [Concomitant]
     Active Substance: PHENYRAMIDOL
     Indication: Musculoskeletal pain
     Dosage: UNK

REACTIONS (2)
  - Kounis syndrome [Recovered/Resolved]
  - Electrocardiogram QT prolonged [Recovered/Resolved]
